FAERS Safety Report 9422369 (Version 1)
Quarter: 2013Q3

REPORT INFORMATION
  Report Type: Spontaneous
  Country: US (occurrence: US)
  Receive Date: 20130726
  Receipt Date: 20130726
  Transmission Date: 20140515
  Serious: Yes (Other)
  Sender: FDA-Public Use
  Company Number: US-RANBAXY-2010US-32980

PATIENT
  Age: 50 Year
  Sex: Male

DRUGS (3)
  1. CARBAMAZEPINE [Suspect]
     Indication: BIPOLAR DISORDER
     Dosage: UNK
     Route: 065
  2. QUETIAPINE [Suspect]
     Indication: BIPOLAR DISORDER
     Dosage: UNK
     Route: 065
  3. RISPERIDONE [Suspect]
     Indication: BIPOLAR DISORDER
     Dosage: 2MG/DAY
     Route: 065

REACTIONS (4)
  - Akathisia [Recovered/Resolved]
  - Drug interaction [Unknown]
  - Sedation [Unknown]
  - Mood altered [Unknown]
